FAERS Safety Report 9482308 (Version 1)
Quarter: 2013Q3

REPORT INFORMATION
  Report Type: Spontaneous
  Country: ES (occurrence: GB)
  Receive Date: 20130828
  Receipt Date: 20130828
  Transmission Date: 20140515
  Serious: Yes (Other)
  Sender: FDA-Public Use
  Company Number: GB-FRI-1000048156

PATIENT
  Age: 68 Year
  Sex: Female
  Weight: 66 kg

DRUGS (7)
  1. SERTRALINE [Concomitant]
     Route: 048
  2. TIOTROPIUM BROMIDE [Concomitant]
     Indication: CHRONIC OBSTRUCTIVE PULMONARY DISEASE
     Route: 055
     Dates: end: 20130503
  3. VENTOLIN [Concomitant]
     Route: 055
  4. ACLIDINIUM [Suspect]
     Indication: CHRONIC OBSTRUCTIVE PULMONARY DISEASE
     Dosage: 750 MCG
     Route: 055
     Dates: start: 20130503, end: 20130605
  5. CLARITHROMYCIN [Concomitant]
     Dates: start: 20130517
  6. CLENIL MODULITE [Concomitant]
     Route: 055
  7. SALMETEROL [Concomitant]
     Indication: CHRONIC OBSTRUCTIVE PULMONARY DISEASE
     Route: 055

REACTIONS (3)
  - Pruritus [Recovering/Resolving]
  - Pain [Recovering/Resolving]
  - Rash [Recovering/Resolving]
